FAERS Safety Report 5086287-3 (Version None)
Quarter: 2006Q3

REPORT INFORMATION
  Report Type: 
  Country: None (occurrence: None)
  Receive Date: 20060703
  Receipt Date: 20051205
  Transmission Date: 20061208
  Serious: No
  Sender: FDA-Public Use
  Company Number: 2005S1011678

PATIENT
  Age: 50 Year
  Sex: Female

DRUGS (7)
  1. CLOZAPINE [Suspect]
     Indication: SCHIZOPHRENIA
     Dosage: 100 MG; QAM; PO; SEE IMAGE
     Route: 048
     Dates: start: 20010510
  2. LEVOTHYROXINE SODIUM [Concomitant]
  3. POLYCARBOPHIL CALCIUM [Concomitant]
  4. PAROXETINE HYDROCHLORIDE [Concomitant]
  5. CLONAZEPAM [Concomitant]
  6. CALCIUM GLUCONATE [Concomitant]
  7. CETIRIZINE HCL [Concomitant]

REACTIONS (2)
  - GRANULOCYTOPENIA [None]
  - LEUKOPENIA [None]
